FAERS Safety Report 7380257-8 (Version None)
Quarter: 2011Q1

REPORT INFORMATION
  Report Type: 
  Country: None (occurrence: None)
  Receive Date: 20110329
  Receipt Date: 20110314
  Transmission Date: 20110831
  Serious: Yes (Hospitalization, Other)
  Sender: FDA-Public Use
  Company Number: FR-SANOFI-AVENTIS-2011SA011204

PATIENT
  Age: 63 Year
  Sex: Female

DRUGS (24)
  1. SEROPLEX [Concomitant]
     Route: 048
  2. TEMAZEPAM [Concomitant]
     Route: 048
     Dates: start: 20080109
  3. PARACETAMOL [Concomitant]
     Route: 048
     Dates: start: 20090716
  4. STILNOX [Suspect]
     Route: 048
     Dates: start: 20060725, end: 20110206
  5. XANAX [Concomitant]
     Indication: SUICIDAL IDEATION
     Route: 048
     Dates: start: 20090703, end: 20100801
  6. XANAX [Concomitant]
     Route: 048
     Dates: start: 20090703, end: 20100801
  7. IMOVANE [Concomitant]
     Route: 048
     Dates: start: 20090716
  8. RISPERDAL [Concomitant]
     Route: 055
     Dates: start: 20100707, end: 20100830
  9. LYRICA [Concomitant]
     Route: 048
     Dates: start: 20100830, end: 20101019
  10. SPASMAG [Concomitant]
     Route: 048
     Dates: start: 20090724
  11. EFFEXOR [Concomitant]
     Route: 065
     Dates: start: 20080109, end: 20101001
  12. ATARAX [Concomitant]
     Indication: INSOMNIA
     Route: 048
     Dates: start: 20061002
  13. ACETAMINOPHEN [Concomitant]
     Route: 048
     Dates: start: 20080109, end: 20080401
  14. ZYPREXA [Concomitant]
     Route: 048
     Dates: start: 20100623, end: 20100701
  15. CURCUMA LONGA [Concomitant]
     Route: 048
     Dates: start: 20091021
  16. AERIUS [Concomitant]
     Route: 065
     Dates: start: 20061002
  17. OFLOCET [Concomitant]
     Route: 048
     Dates: start: 20090716, end: 20090720
  18. HYPERICUM PERFORATUM EXTRACT [Concomitant]
  19. SEROPLEX [Concomitant]
     Dosage: 10 MG MORNING AND 5 MG EVENING FOR ONE MONTH TO REPRESCRIBE
     Route: 048
     Dates: start: 20060725
  20. ALPRAZOLAM [Concomitant]
     Route: 048
     Dates: start: 20060725
  21. IBUPROFEN [Concomitant]
     Route: 048
     Dates: start: 20090106, end: 20090201
  22. SEGLOR [Concomitant]
     Route: 048
     Dates: start: 20100120, end: 20100401
  23. STILNOX [Suspect]
     Route: 048
     Dates: start: 19930101
  24. PAROXETINE HCL [Concomitant]
     Route: 048
     Dates: start: 20060803

REACTIONS (10)
  - APHASIA [None]
  - NERVOUSNESS [None]
  - SLEEP APNOEA SYNDROME [None]
  - TOXICITY TO VARIOUS AGENTS [None]
  - CONFUSIONAL STATE [None]
  - TRANSIENT ISCHAEMIC ATTACK [None]
  - DISORIENTATION [None]
  - SPEECH DISORDER [None]
  - MENTAL DISORDER [None]
  - CONDITION AGGRAVATED [None]
